FAERS Safety Report 17911833 (Version 1)
Quarter: 2020Q2

REPORT INFORMATION
  Report Type: Spontaneous
  Country: US (occurrence: US)
  Receive Date: 20200618
  Receipt Date: 20200618
  Transmission Date: 20200714
  Serious: Yes (Hospitalization)
  Sender: FDA-Public Use
  Company Number: None

PATIENT
  Age: 80 Year
  Sex: Female

DRUGS (8)
  1. LOSTARTAN [Concomitant]
  2. HUMIRA [Suspect]
     Active Substance: ADALIMUMAB
     Indication: PSORIASIS
     Dosage: ?          OTHER FREQUENCY:EVERY OTHER WEEK;?
     Route: 058
     Dates: start: 20190812
  3. HCTZ [Concomitant]
     Active Substance: HYDROCHLOROTHIAZIDE
  4. ATOVASTATIN [Concomitant]
     Active Substance: ATORVASTATIN
  5. LEVOTYROXINE [Concomitant]
  6. METHOTREXATE. [Concomitant]
     Active Substance: METHOTREXATE
  7. FLOVENT [Concomitant]
     Active Substance: FLUTICASONE PROPIONATE
  8. MONTELUKAST [Concomitant]
     Active Substance: MONTELUKAST SODIUM

REACTIONS (1)
  - Hypertension [None]

NARRATIVE: CASE EVENT DATE: 20200617
